FAERS Safety Report 5657077-5 (Version None)
Quarter: 2008Q1

REPORT INFORMATION
  Report Type: 
  Country: None (occurrence: None)
  Receive Date: 20080310
  Receipt Date: 20080226
  Transmission Date: 20080703
  Serious: Yes (Other)
  Sender: FDA-Public Use
  Company Number: US-ROCHE-551094

PATIENT
  Age: 77 Year
  Sex: Male

DRUGS (1)
  1. INTERFERON ALFA [Suspect]
     Indication: MACULAR DEGENERATION
     Route: 058

REACTIONS (6)
  - CHOROIDAL NEOVASCULARISATION [None]
  - DISEASE PROGRESSION [None]
  - FATIGUE [None]
  - MACULAR DEGENERATION [None]
  - RETINAL EXUDATES [None]
  - RETINOPATHY [None]
